FAERS Safety Report 6908911-X (Version None)
Quarter: 2010Q3

REPORT INFORMATION
  Report Type: 
  Country: None (occurrence: None)
  Receive Date: 20100805
  Receipt Date: 20100728
  Transmission Date: 20110219
  Serious: Yes (Hospitalization)
  Sender: FDA-Public Use
  Company Number: US-AMGEN-KDL415789

PATIENT
  Sex: Female
  Weight: 65.8 kg

DRUGS (4)
  1. ENBREL [Suspect]
     Indication: RHEUMATOID ARTHRITIS
     Route: 058
     Dates: start: 20081001
  2. DURAGESIC-100 [Concomitant]
     Route: 062
     Dates: start: 20070101
  3. OXYCONTIN [Concomitant]
     Dates: start: 20070101
  4. OXYCODONE [Concomitant]
     Dates: start: 20070101

REACTIONS (2)
  - INTERVERTEBRAL DISC PROTRUSION [None]
  - NECK PAIN [None]
